FAERS Safety Report 20546778 (Version 1)
Quarter: 2022Q1

REPORT INFORMATION
  Report Type: Spontaneous
  Country: DE (occurrence: DE)
  Receive Date: 20220303
  Receipt Date: 20220303
  Transmission Date: 20220423
  Serious: Yes (Other)
  Sender: FDA-Public Use
  Company Number: None

PATIENT
  Age: 51 Year
  Sex: Male
  Weight: 70 kg

DRUGS (4)
  1. AMIODARONE [Suspect]
     Active Substance: AMIODARONE
     Indication: Left ventricular dysfunction
     Dosage: 200 MILLIGRAM DAILY; 200MG/DAY
     Route: 048
     Dates: start: 20190425, end: 20210902
  2. AMIODARONE [Suspect]
     Active Substance: AMIODARONE
     Indication: Tachycardia induced cardiomyopathy
  3. AMIODARONE [Suspect]
     Active Substance: AMIODARONE
     Indication: Tachyarrhythmia
  4. AMIODARONE [Suspect]
     Active Substance: AMIODARONE
     Indication: Atrial tachycardia

REACTIONS (3)
  - Hyperthyroidism [Not Recovered/Not Resolved]
  - Tachycardia induced cardiomyopathy [Not Recovered/Not Resolved]
  - Weight decreased [Not Recovered/Not Resolved]

NARRATIVE: CASE EVENT DATE: 20220115
